FAERS Safety Report 14495040 (Version 3)
Quarter: 2018Q1

REPORT INFORMATION
  Report Type: Report from Study
  Country: FR (occurrence: FR)
  Receive Date: 20180206
  Receipt Date: 20180301
  Transmission Date: 20180509
  Serious: Yes (Hospitalization)
  Sender: FDA-Public Use
  Company Number: FR-VIIV HEALTHCARE LIMITED-FR2018GSK019005

PATIENT
  Age: 48 Year
  Sex: Male
  Weight: 74 kg

DRUGS (7)
  1. NORVIR [Concomitant]
     Active Substance: RITONAVIR
  2. CELSENTRI [Suspect]
     Active Substance: MARAVIROC
     Indication: HIV INFECTION
     Dosage: UNK
     Dates: start: 20090108, end: 20131029
  3. ISENTRESS [Suspect]
     Active Substance: RALTEGRAVIR POTASSIUM
     Indication: HIV INFECTION
     Dosage: UNK
     Dates: start: 20090108, end: 20131029
  4. DOLUTEGRAVIR [Suspect]
     Active Substance: DOLUTEGRAVIR
     Indication: HIV INFECTION
     Dosage: 50 MG, BID
     Dates: start: 20131029
  5. APTIVUS [Concomitant]
     Active Substance: TIPRANAVIR
  6. INTELENCE [Suspect]
     Active Substance: ETRAVIRINE
     Indication: HIV INFECTION
     Dosage: UNK
     Dates: start: 20090108, end: 20131029
  7. FUZEON [Concomitant]
     Active Substance: ENFUVIRTIDE

REACTIONS (4)
  - Endoscopy [Unknown]
  - Virologic failure [Unknown]
  - Papilloma excision [Unknown]
  - Colonoscopy [Unknown]

NARRATIVE: CASE EVENT DATE: 2013
